FAERS Safety Report 10986087 (Version 1)
Quarter: 2015Q2

REPORT INFORMATION
  Report Type: Spontaneous
  Country: US (occurrence: None)
  Receive Date: 20150403
  Receipt Date: 20150403
  Transmission Date: 20150821
  Serious: Yes (Disabling, Other)
  Sender: FDA-Public Use
  Company Number: None

PATIENT
  Age: 34 Year
  Sex: Female
  Weight: 61.24 kg

DRUGS (7)
  1. LEXAPRO [Concomitant]
     Active Substance: ESCITALOPRAM OXALATE
  2. WELLBUTRIN [Concomitant]
     Active Substance: BUPROPION HYDROCHLORIDE
  3. BIAXIN XL - GENERIC CLARITHROM ER [Suspect]
     Active Substance: CLARITHROMYCIN
     Indication: MALAISE
     Dosage: TAKEN BY MOUTH
     Route: 048
     Dates: start: 20150326, end: 20150329
  4. BIAXIN XL - GENERIC CLARITHROM ER [Suspect]
     Active Substance: CLARITHROMYCIN
     Indication: COUGH
     Dosage: TAKEN BY MOUTH
     Route: 048
     Dates: start: 20150326, end: 20150329
  5. BIAXIN XL - GENERIC CLARITHROM ER [Suspect]
     Active Substance: CLARITHROMYCIN
     Indication: INFECTION
     Dosage: TAKEN BY MOUTH
     Route: 048
     Dates: start: 20150326, end: 20150329
  6. VYVANSE [Concomitant]
     Active Substance: LISDEXAMFETAMINE DIMESYLATE
  7. BIAXIN XL - GENERIC CLARITHROM ER [Suspect]
     Active Substance: CLARITHROMYCIN
     Indication: PNEUMONIA
     Dosage: TAKEN BY MOUTH
     Route: 048
     Dates: start: 20150326, end: 20150329

REACTIONS (15)
  - Panic reaction [None]
  - Crying [None]
  - Derealisation [None]
  - Fear [None]
  - Head discomfort [None]
  - Feeling of body temperature change [None]
  - Asthenia [None]
  - Feeling abnormal [None]
  - Anxiety [None]
  - Insomnia [None]
  - Gastric disorder [None]
  - Nightmare [None]
  - Decreased appetite [None]
  - Mental disorder [None]
  - Night sweats [None]

NARRATIVE: CASE EVENT DATE: 20150331
